FAERS Safety Report 10972835 (Version 2)
Quarter: 2015Q2

REPORT INFORMATION
  Report Type: Spontaneous
  Country: US (occurrence: US)
  Receive Date: 20150331
  Receipt Date: 20150525
  Transmission Date: 20150821
  Serious: No
  Sender: FDA-Public Use
  Company Number: US-JNJFOC-20140204003

PATIENT
  Age: 11 Year
  Sex: Male

DRUGS (1)
  1. RISPERDAL M-TAB [Suspect]
     Active Substance: RISPERIDONE
     Indication: PRODUCT USED FOR UNKNOWN INDICATION
     Dosage: 0.5MG IN THE MORNING AND HALF OF A 0.5 AT BEDTIME
     Route: 048
     Dates: start: 201311

REACTIONS (2)
  - Drug dose omission [Not Recovered/Not Resolved]
  - Incorrect dose administered [Unknown]

NARRATIVE: CASE EVENT DATE: 201312
